FAERS Safety Report 8593705-2 (Version None)
Quarter: 2012Q3

REPORT INFORMATION
  Report Type: 
  Country: None (occurrence: None)
  Receive Date: 20120814
  Receipt Date: 20120810
  Transmission Date: 20120928
  Serious: Yes (Other)
  Sender: FDA-Public Use
  Company Number: CN-ABBOTT-12P-035-0967575-00

PATIENT
  Sex: Female

DRUGS (2)
  1. DEPAKENE [Suspect]
     Dosage: EXTENDED RELEASE, 1000 MG DAILY
     Route: 048
     Dates: start: 20090119, end: 20090810
  2. DEPAKENE [Suspect]
     Indication: BIPOLAR DISORDER
     Dosage: EXTENDED RELEASE, 500 MG DAILY
     Route: 048
     Dates: start: 20090114

REACTIONS (2)
  - DIARRHOEA [None]
  - MELAENA [None]
